FAERS Safety Report 5804007-9 (Version None)
Quarter: 2008Q3

REPORT INFORMATION
  Report Type: 
  Country: None (occurrence: None)
  Receive Date: 20080703
  Receipt Date: 20080623
  Transmission Date: 20090109
  Serious: Yes (Hospitalization)
  Sender: FDA-Public Use
  Company Number: 234427J08USA

PATIENT
  Age: 48 Year
  Sex: Female
  Weight: 59.8748 kg

DRUGS (5)
  1. REBIF [Suspect]
     Indication: MULTIPLE SCLEROSIS
     Dosage: 44 MCG, 3 IN 1 WEEKS, SUBCUTANEOUS
     Route: 058
     Dates: start: 20060914
  2. AMITRIPTYLINE HCL [Concomitant]
  3. ABILIFY [Concomitant]
  4. FOLIC ACID [Concomitant]
  5. IMITREX [Concomitant]

REACTIONS (7)
  - DISEASE RECURRENCE [None]
  - FATIGUE [None]
  - INJECTION SITE HAEMATOMA [None]
  - INJECTION SITE URTICARIA [None]
  - LABILE BLOOD PRESSURE [None]
  - MULTIPLE SCLEROSIS [None]
  - UVEITIS [None]
